FAERS Safety Report 5776083-3 (Version None)
Quarter: 2008Q2

REPORT INFORMATION
  Report Type: 
  Country: None (occurrence: None)
  Receive Date: 20080613
  Receipt Date: 20080602
  Transmission Date: 20081010
  Serious: Yes (Hospitalization)
  Sender: FDA-Public Use
  Company Number: 2008-178597-NL

PATIENT
  Age: 28 Year
  Sex: Male

DRUGS (1)
  1. MIRTAZAPINE [Suspect]
     Indication: MAJOR DEPRESSION
     Dosage: DF ORAL
     Route: 048
     Dates: start: 20080201, end: 20080301

REACTIONS (2)
  - INFECTION [None]
  - STEVENS-JOHNSON SYNDROME [None]
